FAERS Safety Report 16291768 (Version 3)
Quarter: 2019Q3

REPORT INFORMATION
  Report Type: Spontaneous
  Country: DE (occurrence: DE)
  Receive Date: 20190509
  Receipt Date: 20190715
  Transmission Date: 20191004
  Serious: Yes (Hospitalization)
  Sender: FDA-Public Use
  Company Number: DE-STALLERGENES SAS-2066844

PATIENT
  Age: 41 Year
  Sex: Female
  Weight: 58 kg

DRUGS (2)
  1. TREE POLLENS [Concomitant]
     Route: 058
     Dates: start: 201812
  2. ORALAIR [Suspect]
     Active Substance: ANTHOXANTHUM ODORATUM POLLEN\DACTYLIS GLOMERATA POLLEN\LOLIUM PERENNE POLLEN\PHLEUM PRATENSE POLLEN\POA PRATENSIS POLLEN
     Indication: PRODUCT USED FOR UNKNOWN INDICATION
     Route: 060
     Dates: start: 20190114, end: 20190209

REACTIONS (6)
  - Tongue oedema [Recovered/Resolved]
  - Gastrooesophageal reflux disease [Recovered/Resolved]
  - Cervicogenic headache [Recovered/Resolved]
  - Dizziness [Recovered/Resolved]
  - Sensation of foreign body [Recovered/Resolved]
  - Throat tightness [Recovered/Resolved]

NARRATIVE: CASE EVENT DATE: 201902
